FAERS Safety Report 20365739 (Version 2)
Quarter: 2022Q1

REPORT INFORMATION
  Report Type: Spontaneous
  Country: US (occurrence: US)
  Receive Date: 20220123
  Receipt Date: 20220209
  Transmission Date: 20220423
  Serious: No
  Sender: FDA-Public Use
  Company Number: US-BIOGEN-2022BI01087952

PATIENT
  Age: 55 Year
  Sex: Female

DRUGS (1)
  1. TECFIDERA [Suspect]
     Active Substance: DIMETHYL FUMARATE
     Indication: Multiple sclerosis
     Dosage: TOOK (120MG) 1 CAPSULE BY MOUTH TWICE DAILY FOR 7 DAYS, THEN WOULD TAKE (240MG) 1 CAPSULE TWICE D...
     Route: 048
     Dates: start: 20220110, end: 20220131

REACTIONS (2)
  - Frequent bowel movements [Unknown]
  - Gastrointestinal disorder [Unknown]

NARRATIVE: CASE EVENT DATE: 20220101
